FAERS Safety Report 5278748-9 (Version None)
Quarter: 2007Q1

REPORT INFORMATION
  Report Type: 
  Country: None (occurrence: None)
  Receive Date: 20070321
  Receipt Date: 20070311
  Transmission Date: 20070707
  Serious: Yes (Life-Threatening, Hospitalization)
  Sender: FDA-Public Use
  Company Number: CHNY2006GB03104

PATIENT
  Age: 31 Year
  Sex: Female
  Weight: 62 kg

DRUGS (7)
  1. IBUPROFEN [Suspect]
     Indication: PAIN
     Dosage: TID, ORAL
     Route: 048
     Dates: start: 20060802, end: 20060814
  2. LACTULOSE (NCH) (LACTULOSE) UNKNOWN [Suspect]
     Indication: ALCOHOLIC LIVER DISEASE
     Dosage: 10 ML, BID, ORAL
     Route: 048
     Dates: start: 20060605
  3. PREDNISOLONE [Suspect]
     Indication: HEPATITIS
     Dosage: 40 MG, QD, ORAL
     Route: 048
     Dates: start: 20060612, end: 20060618
  4. FOLIC ACID [Concomitant]
  5. SPIRONOLACTONE [Concomitant]
  6. THIAMINE (THIAMINE) [Concomitant]
  7. BENZODIAZEPINES (NO INGREDIENTS/SUBSTANCES) [Concomitant]

REACTIONS (1)
  - DUODENAL ULCER [None]
